FAERS Safety Report 5189924-8 (Version None)
Quarter: 2006Q4

REPORT INFORMATION
  Report Type: 
  Country: None (occurrence: None)
  Receive Date: 20061218
  Receipt Date: 20061201
  Transmission Date: 20070319
  Serious: Yes (Hospitalization)
  Sender: FDA-Public Use
  Company Number: S06-FRA-05279-01

PATIENT
  Age: 21 Year
  Sex: Female
  Weight: 0.055 kg

DRUGS (6)
  1. MONURIL (FOSFOMYCIN TROMETAMOL) [Suspect]
     Indication: URINARY TRACT INFECTION
     Dosage: 3 G ONCE PO
     Route: 048
     Dates: start: 20061026, end: 20061026
  2. DICETEL (PINAVERIUM BROMIDE) [Suspect]
     Indication: ABDOMINAL PAIN
     Dates: start: 20061107, end: 20061111
  3. SPASFON (TRIMETHYLPHLOROGLUCINOL) [Suspect]
     Indication: ABDOMINAL PAIN
     Dates: start: 20061102, end: 20061107
  4. ACETAMINOPHEN [Suspect]
     Indication: ABDOMINAL PAIN
     Dates: start: 20061102, end: 20061107
  5. PROPOFAN (PARACETAMOL/CAFFEINE/DEXTROPROPOXYPHENE) [Suspect]
     Indication: ABDOMINAL PAIN
     Dates: start: 20061107, end: 20061111
  6. CYCLEANE (DESOGESTREL/ETHINYLESTRADIOL) [Suspect]
     Dosage: 30 MCG QD PO
     Route: 048
     Dates: start: 20030101

REACTIONS (1)
  - PANCREATITIS ACUTE [None]
